FAERS Safety Report 4646213-5 (Version None)
Quarter: 2005Q2

REPORT INFORMATION
  Report Type: 
  Country: None (occurrence: None)
  Receive Date: 20050427
  Receipt Date: 19990701
  Transmission Date: 20051028
  Serious: Yes (Other)
  Sender: FDA-Public Use
  Company Number: CH-JNJFOC-20050305716

PATIENT
  Sex: Male
  Weight: 61 kg

DRUGS (42)
  1. RISPERIDONE [Suspect]
     Dates: start: 19990202
  2. RISPERIDONE [Suspect]
     Dates: start: 19990202
  3. RISPERIDONE [Suspect]
     Indication: SCHIZOPHRENIA
     Dates: start: 19990202
  4. ZUCLOPENTHIXOL [Concomitant]
     Indication: SCHIZOPHRENIA
  5. CLOZAPINE [Concomitant]
     Dates: end: 19990208
  6. CLOZAPINE [Concomitant]
     Dates: end: 19990208
  7. CLOZAPINE [Concomitant]
     Dates: end: 19990208
  8. CLOZAPINE [Concomitant]
     Dates: end: 19990208
  9. CLOZAPINE [Concomitant]
     Dates: end: 19990208
  10. CLOZAPINE [Concomitant]
     Dates: end: 19990208
  11. CLOZAPINE [Concomitant]
     Dates: end: 19990208
  12. CLOZAPINE [Concomitant]
     Dates: end: 19990208
  13. CLOZAPINE [Concomitant]
     Indication: SCHIZOPHRENIA
     Dates: end: 19990208
  14. FLUPENTHIXOL [Concomitant]
     Dates: end: 19990221
  15. FLUPENTHIXOL [Concomitant]
     Dates: end: 19990221
  16. FLUPENTHIXOL [Concomitant]
     Dates: end: 19990221
  17. FLUPENTHIXOL [Concomitant]
     Dates: end: 19990221
  18. FLUPENTHIXOL [Concomitant]
     Indication: SCHIZOPHRENIA
     Dates: end: 19990221
  19. FLUPHENAZINE [Concomitant]
     Dates: end: 19990606
  20. FLUPHENAZINE [Concomitant]
     Dates: end: 19990606
  21. FLUPHENAZINE [Concomitant]
     Dates: end: 19990606
  22. FLUPHENAZINE [Concomitant]
     Dates: end: 19990606
  23. FLUPHENAZINE [Concomitant]
     Dates: end: 19990606
  24. FLUPHENAZINE [Concomitant]
     Dates: end: 19990606
  25. FLUPHENAZINE [Concomitant]
     Dates: end: 19990606
  26. FLUPHENAZINE [Concomitant]
     Dates: end: 19990606
  27. FLUPHENAZINE [Concomitant]
     Dates: end: 19990606
  28. FLUPHENAZINE [Concomitant]
     Indication: SCHIZOPHRENIA
     Dates: end: 19990606
  29. PRAZINE [Concomitant]
     Dates: start: 19990228, end: 19990701
  30. PRAZINE [Concomitant]
     Dates: start: 19990228, end: 19990701
  31. PRAZINE [Concomitant]
     Dates: start: 19990228, end: 19990701
  32. PRAZINE [Concomitant]
     Dates: start: 19990228, end: 19990701
  33. PRAZINE [Concomitant]
     Dates: start: 19990228, end: 19990701
  34. LORAZEPAM [Concomitant]
     Dates: start: 19981201
  35. LORAZEPAM [Concomitant]
     Dates: start: 19981201
  36. LORAZEPAM [Concomitant]
     Dates: start: 19981201
  37. LORAZEPAM [Concomitant]
     Dates: start: 19981201
  38. LORAZEPAM [Concomitant]
     Dates: start: 19981201
  39. LORAZEPAM [Concomitant]
     Dates: start: 19981201
  40. LORAZEPAM [Concomitant]
     Dates: start: 19981201
  41. LORAZEPAM [Concomitant]
     Dates: start: 19981201
  42. LORAZEPAM [Concomitant]
     Dates: start: 19981201

REACTIONS (3)
  - AKATHISIA [None]
  - EXTRAPYRAMIDAL DISORDER [None]
  - LEUKOPENIA [None]
